FAERS Safety Report 24228712 (Version 1)
Quarter: 2024Q3

REPORT INFORMATION
  Report Type: Spontaneous
  Country: US (occurrence: US)
  Receive Date: 20240820
  Receipt Date: 20240820
  Transmission Date: 20241016
  Serious: No
  Sender: ABBVIE
  Company Number: US-ABBVIE-5885890

PATIENT

DRUGS (4)
  1. HUMIRA [Suspect]
     Active Substance: ADALIMUMAB
     Indication: Product used for unknown indication
     Route: 058
  2. COSENTYX [Concomitant]
     Active Substance: SECUKINUMAB
     Indication: Product used for unknown indication
  3. ENBREL [Concomitant]
     Active Substance: BENZYL ALCOHOL\ETANERCEPT
     Indication: Product used for unknown indication
  4. SIMPONI ARIA [Concomitant]
     Active Substance: GOLIMUMAB
     Indication: Product used for unknown indication

REACTIONS (1)
  - Drug ineffective [Unknown]
